FAERS Safety Report 21961806 (Version 1)
Quarter: 2023Q1

REPORT INFORMATION
  Report Type: Other
  Country: AU (occurrence: AU)
  Receive Date: 20230207
  Receipt Date: 20230207
  Transmission Date: 20230417
  Serious: Yes (Other)
  Sender: FDA-Public Use
  Company Number: AU-TOLMAR, INC.-23AU038501

PATIENT
  Sex: Male

DRUGS (1)
  1. ELIGARD [Suspect]
     Active Substance: LEUPROLIDE ACETATE
     Indication: Prostate cancer
     Dosage: 22.5 MILLIGRAM, Q 3 MONTH
     Route: 058

REACTIONS (7)
  - Metastases to bone [Unknown]
  - Mood swings [Unknown]
  - Asthenia [Unknown]
  - Pollakiuria [Unknown]
  - Fatigue [Unknown]
  - Muscle atrophy [Unknown]
  - Libido decreased [Unknown]
